FAERS Safety Report 8487679 (Version 9)
Quarter: 2013Q2

REPORT INFORMATION
  Report Type: Report from Study
  Country: JP (occurrence: JP)
  Receive Date: 20120402
  Receipt Date: 20130514
  Transmission Date: 20140414
  Serious: Yes (Other)
  Sender: FDA-Public Use
  Company Number: JP-VERTEX PHARMACEUTICAL INC.-AE-2012-004521

PATIENT
  Age: 50 Year
  Sex: Male

DRUGS (13)
  1. VX-950 (TELAPREVIR) [Suspect]
     Indication: CHRONIC HEPATITIS C
     Dosage: 2250 MG, QD
     Route: 048
     Dates: start: 20120207, end: 20120430
  2. PEGINTERFERON ALFA-2B [Suspect]
     Indication: CHRONIC HEPATITIS C
     Dosage: 0.7 ?G/KG, QW
     Route: 058
     Dates: start: 20120207, end: 20120220
  3. PEGINTERFERON ALFA-2B [Suspect]
     Dosage: 0.6 ?G/KG, QW
     Route: 058
     Dates: start: 20120221, end: 20120717
  4. REBETOL [Suspect]
     Indication: CHRONIC HEPATITIS C
     Dosage: 800 MG, QD
     Route: 048
     Dates: start: 20120207, end: 20120220
  5. REBETOL [Suspect]
     Dosage: 600 MG, QD
     Route: 048
     Dates: start: 20120221
  6. REBETOL [Suspect]
     Dosage: 600 MG, QD
     Route: 048
     Dates: start: 20120320, end: 20120326
  7. REBETOL [Suspect]
     Dosage: 400 MG, QD
     Route: 048
     Dates: start: 20120327, end: 20120402
  8. REBETOL [Suspect]
     Dosage: 200 MG, QD
     Route: 048
     Dates: start: 20120403, end: 20120528
  9. REBETOL [Suspect]
     Dosage: 400 MG, QD
     Route: 048
     Dates: start: 20120529, end: 20120625
  10. REBETOL [Suspect]
     Dosage: 800 MG, QD
     Route: 048
     Dates: start: 20120626, end: 20120723
  11. MICARDIS [Concomitant]
     Dosage: 40 MG, QD
     Route: 048
  12. MICARDIS [Concomitant]
     Dosage: 1 DF, QD
     Route: 048
     Dates: end: 20120717
  13. FEBURIC [Concomitant]
     Dosage: 20 MG, QD
     Route: 048

REACTIONS (8)
  - Neutrophil count decreased [Not Recovered/Not Resolved]
  - Pyrexia [None]
  - Haemoglobin decreased [None]
  - Platelet count decreased [None]
  - Hyperuricaemia [None]
  - Hypertension [None]
  - Rash [None]
  - Dizziness postural [None]
